FAERS Safety Report 9349796 (Version 1)
Quarter: 2013Q2

REPORT INFORMATION
  Report Type: Spontaneous
  Country: AU (occurrence: AU)
  Receive Date: 20130614
  Receipt Date: 20130614
  Transmission Date: 20140414
  Serious: Yes (Hospitalization, Other)
  Sender: FDA-Public Use
  Company Number: AU-ELI_LILLY_AND_COMPANY-AU201306001907

PATIENT
  Sex: Male

DRUGS (1)
  1. HUMALOG 25% LISPRO, 75% NPL [Suspect]
     Dosage: UNK
     Route: 058
     Dates: start: 20130502

REACTIONS (7)
  - Convulsion [Unknown]
  - Hypersensitivity [Unknown]
  - Fall [Unknown]
  - Abdominal pain [Unknown]
  - Incontinence [Unknown]
  - Paraesthesia [Unknown]
  - Tryptase increased [Unknown]
